FAERS Safety Report 10999981 (Version 1)
Quarter: 2015Q2

REPORT INFORMATION
  Report Type: Spontaneous
  Country: US (occurrence: US)
  Receive Date: 20150408
  Receipt Date: 20150408
  Transmission Date: 20150821
  Serious: No
  Sender: FDA-Public Use
  Company Number: US-009507513-1503USA011511

PATIENT
  Age: 18 Year
  Sex: Female
  Weight: 146 kg

DRUGS (1)
  1. NEXPLANON [Suspect]
     Active Substance: ETONOGESTREL
     Indication: CONTRACEPTION
     Dosage: 8 CM ABOVE EPICONDYLE
     Route: 059
     Dates: start: 20141222

REACTIONS (7)
  - Implant site pain [Unknown]
  - Implant site swelling [Unknown]
  - Device difficult to use [Not Recovered/Not Resolved]
  - Hypoaesthesia [Unknown]
  - Device dislocation [Not Recovered/Not Resolved]
  - Mood altered [Unknown]
  - Medical device complication [Not Recovered/Not Resolved]

NARRATIVE: CASE EVENT DATE: 20141222
